FAERS Safety Report 7511879-9 (Version None)
Quarter: 2011Q2

REPORT INFORMATION
  Report Type: 
  Country: None (occurrence: None)
  Receive Date: 20110531
  Receipt Date: 20110516
  Transmission Date: 20111010
  Serious: Yes (Hospitalization)
  Sender: FDA-Public Use
  Company Number: FR-JNJFOC-20101203699

PATIENT
  Sex: Male
  Weight: 44.5 kg

DRUGS (3)
  1. REMICADE [Suspect]
     Indication: CROHN'S DISEASE
     Route: 042
     Dates: start: 20080612
  2. REMICADE [Suspect]
     Route: 042
     Dates: start: 20100406
  3. CIPROFLAXACIN [Concomitant]

REACTIONS (1)
  - FOOD POISONING [None]
